FAERS Safety Report 11166795 (Version 1)
Quarter: 2015Q2

REPORT INFORMATION
  Report Type: Spontaneous
  Country: US (occurrence: None)
  Receive Date: 20150604
  Receipt Date: 20150604
  Transmission Date: 20150821
  Serious: Yes (Death)
  Sender: FDA-Public Use
  Company Number: None

PATIENT
  Age: 68 Year
  Sex: Male
  Weight: 76 kg

DRUGS (3)
  1. FERUMOXYTOL [Suspect]
     Active Substance: FERUMOXYTOL
     Indication: NUCLEAR MAGNETIC RESONANCE IMAGING BRAIN
     Dosage: 1
     Route: 042
     Dates: start: 20150422
  2. GADOTERIDOL [Suspect]
     Active Substance: GADOTERIDOL
     Dosage: 1
     Route: 042
     Dates: start: 20150422
  3. FERUMOXYTOL [Suspect]
     Active Substance: FERUMOXYTOL
     Indication: SCAN WITH CONTRAST
     Dosage: 1
     Route: 042
     Dates: start: 20150422

REACTIONS (5)
  - General physical health deterioration [None]
  - Hypophagia [None]
  - Asthenia [None]
  - Glioma [None]
  - Malignant neoplasm progression [None]

NARRATIVE: CASE EVENT DATE: 20150512
